FAERS Safety Report 5353740-4 (Version None)
Quarter: 2007Q2

REPORT INFORMATION
  Report Type: 
  Country: None (occurrence: None)
  Receive Date: 20070608
  Receipt Date: 20070608
  Transmission Date: 20071010
  Serious: Yes (Life-Threatening, Hospitalization)
  Sender: FDA-Public Use
  Company Number: None

PATIENT
  Age: 90 Year
  Sex: Male

DRUGS (8)
  1. WARFARIN [Suspect]
     Indication: ATRIAL FIBRILLATION
     Dosage: PO
     Route: 048
  2. DIGOXIN [Concomitant]
  3. ASCORBIC ACID [Concomitant]
  4. MULTI-VITAMIN [Concomitant]
  5. GLUCOVANCE [Concomitant]
  6. SOTALOL HYDROCHLORIDE [Concomitant]
  7. NORVASC [Concomitant]
  8. MIRAPEX [Concomitant]

REACTIONS (3)
  - DECREASED APPETITE [None]
  - INTERNATIONAL NORMALISED RATIO INCREASED [None]
  - SUBDURAL HAEMORRHAGE [None]
